FAERS Safety Report 7912270-3 (Version None)
Quarter: 2011Q4

REPORT INFORMATION
  Report Type: 
  Country: None (occurrence: None)
  Receive Date: 20111114
  Receipt Date: 20111104
  Transmission Date: 20120403
  Serious: Yes (Hospitalization, Disabling)
  Sender: FDA-Public Use
  Company Number: FR-MERCK-1110FRA00109

PATIENT
  Age: 56 Year
  Sex: Male
  Weight: 80 kg

DRUGS (3)
  1. JANUMET [Suspect]
     Indication: TYPE 2 DIABETES MELLITUS
     Route: 048
     Dates: start: 20100422, end: 20110822
  2. ACETAMINOPHEN [Concomitant]
     Indication: BACK PAIN
     Route: 048
     Dates: start: 20110114, end: 20110822
  3. AVOCADO-SOYBEAN UNSAPONIFIABLE LIPIDS [Concomitant]
     Indication: OSTEOARTHRITIS
     Route: 048
     Dates: start: 20100528, end: 20110822

REACTIONS (1)
  - PANCREATIC CARCINOMA [None]
